FAERS Safety Report 7499370-X (Version None)
Quarter: 2011Q2

REPORT INFORMATION
  Report Type: 
  Country: None (occurrence: None)
  Receive Date: 20110524
  Receipt Date: 20110510
  Transmission Date: 20111010
  Serious: Yes (Other)
  Sender: FDA-Public Use
  Company Number: PT-JNJFOC-20101207403

PATIENT
  Age: 28 Year
  Sex: Male

DRUGS (6)
  1. MESALAMINE [Concomitant]
  2. REMICADE [Suspect]
     Dosage: 3RD INDUCTION INFUSION
     Route: 042
     Dates: start: 20101001
  3. IMURAN [Concomitant]
  4. REMICADE [Suspect]
     Indication: CROHN'S DISEASE
     Dosage: 3RD INDUCTION INFUSION
     Route: 042
     Dates: start: 20101001
  5. REMICADE [Suspect]
     Route: 042
  6. REMICADE [Suspect]
     Indication: INFLAMMATORY BOWEL DISEASE
     Route: 042

REACTIONS (4)
  - PSORIASIS [None]
  - ANAL ABSCESS [None]
  - HYPERSENSITIVITY [None]
  - PARAESTHESIA [None]
